FAERS Safety Report 13121816 (Version 1)
Quarter: 2017Q1

REPORT INFORMATION
  Report Type: Spontaneous
  Country: JP (occurrence: JP)
  Receive Date: 20170117
  Receipt Date: 20170117
  Transmission Date: 20170428
  Serious: Yes (Other)
  Sender: FDA-Public Use
  Company Number: JP-PFIZER INC-2017018157

PATIENT
  Age: 63 Year
  Sex: Male

DRUGS (4)
  1. RACOL [Concomitant]
     Active Substance: AMINO ACIDS\DEXTROSE\ELECTROLYTES NOS
  2. ASPARA K [Concomitant]
     Active Substance: POTASSIUM ASPARTATE
  3. POLAPREZINC [Concomitant]
     Active Substance: POLAPREZINC
  4. GABAPEN [Suspect]
     Active Substance: GABAPENTIN
     Route: 048

REACTIONS (1)
  - Bradycardia [Unknown]
